FAERS Safety Report 9852233 (Version 1)
Quarter: 2014Q1

REPORT INFORMATION
  Report Type: Spontaneous
  Country: US (occurrence: US)
  Receive Date: 20140129
  Receipt Date: 20140129
  Transmission Date: 20141002
  Serious: Yes (Other)
  Sender: FDA-Public Use
  Company Number: US-SA-2014SA010949

PATIENT
  Age: 54 Year
  Sex: Male

DRUGS (4)
  1. LANTUS [Suspect]
     Indication: DIABETES MELLITUS
     Dosage: DOSE: 30-35 UNITS DOSE:30 UNIT(S)
     Route: 058
  2. LANTUS [Suspect]
     Indication: DIABETES MELLITUS
     Dosage: DOSE: 30-35 UNITS DOSE:35 UNIT(S)
     Route: 058
     Dates: end: 20140101
  3. GABAPENTIN [Suspect]
     Route: 065
  4. NOVOLOG [Suspect]
     Dosage: WITH MEALS
     Route: 065

REACTIONS (5)
  - Cerebral cyst [Not Recovered/Not Resolved]
  - Thinking abnormal [Not Recovered/Not Resolved]
  - Diarrhoea [Recovered/Resolved]
  - Dehydration [Recovered/Resolved]
  - Blood glucose decreased [Not Recovered/Not Resolved]
